FAERS Safety Report 12641676 (Version 1)
Quarter: 2016Q3

REPORT INFORMATION
  Report Type: Report from Study
  Country: ZA (occurrence: ZA)
  Receive Date: 20160810
  Receipt Date: 20160810
  Transmission Date: 20161109
  Serious: Yes (Death, Hospitalization, Other)
  Sender: FDA-Public Use
  Company Number: ZA-AMGEN-ZAFSL2016100957

PATIENT
  Age: 70 Year
  Sex: Male

DRUGS (1)
  1. ARANESP [Suspect]
     Active Substance: DARBEPOETIN ALFA
     Indication: CHRONIC KIDNEY DISEASE
     Dosage: 60 MUG, QWK
     Route: 058
     Dates: start: 201304, end: 201606

REACTIONS (2)
  - Haemoglobin abnormal [Unknown]
  - Cardiac failure [Fatal]

NARRATIVE: CASE EVENT DATE: 201605
